FAERS Safety Report 16719560 (Version 2)
Quarter: 2019Q3

REPORT INFORMATION
  Report Type: Spontaneous
  Country: IL (occurrence: IL)
  Receive Date: 20190820
  Receipt Date: 20190910
  Transmission Date: 20191005
  Serious: Yes (Other)
  Sender: FDA-Public Use
  Company Number: IL-ELI_LILLY_AND_COMPANY-IL201908004810

PATIENT
  Sex: Male

DRUGS (1)
  1. INSULIN GLARGINE [Suspect]
     Active Substance: INSULIN GLARGINE
     Indication: PRODUCT USED FOR UNKNOWN INDICATION
     Dosage: 10 U, DAILY
     Route: 065
     Dates: start: 2017

REACTIONS (1)
  - Chronic lymphocytic leukaemia [Unknown]

NARRATIVE: CASE EVENT DATE: 2017
